FAERS Safety Report 17113171 (Version 6)
Quarter: 2020Q1

REPORT INFORMATION
  Report Type: Report from Study
  Country: SA (occurrence: SA)
  Receive Date: 20191204
  Receipt Date: 20200122
  Transmission Date: 20200409
  Serious: Yes (Disabling)
  Sender: FDA-Public Use
  Company Number: SA-CELLTRION INC.-2019SA026932

PATIENT

DRUGS (18)
  1. ALENDRONATE [Concomitant]
     Active Substance: ALENDRONATE SODIUM
     Indication: OSTEOPOROSIS
     Dosage: 70 MG, 1/WEEK
     Route: 048
     Dates: start: 20190618
  2. REMSIMA [Suspect]
     Active Substance: INFLIXIMAB
     Indication: INFLAMMATORY BOWEL DISEASE
     Dosage: 5 MG/KG WEEK 0,2 AND 6 THEN EVERY 6 WEEKS FOR 3 DOSES
     Route: 042
     Dates: start: 20190425
  3. PREDNISOLONE. [Concomitant]
     Active Substance: PREDNISOLONE
     Dosage: 40 MG, ONCE DAILY
     Route: 048
     Dates: start: 20190520
  4. MESALAZINE [Concomitant]
     Active Substance: MESALAMINE
     Indication: COLITIS ULCERATIVE
     Dosage: 1000 MG, BID
     Route: 048
     Dates: end: 20190623
  5. REMSIMA [Suspect]
     Active Substance: INFLIXIMAB
     Dosage: UNK, AT WEEK 12
     Dates: start: 20190722
  6. PREDNISOLONE. [Concomitant]
     Active Substance: PREDNISOLONE
     Indication: COLITIS ULCERATIVE
     Dosage: 40 MG, ONCE DAILY
     Route: 048
     Dates: start: 20190210, end: 20190410
  7. CHOLECALCIFEROL [Concomitant]
     Active Substance: CHOLECALCIFEROL
     Indication: OSTEOPOROSIS
     Dosage: 50000 IU, 1/WEEK
     Route: 048
     Dates: start: 20190618
  8. HYDROCORTISONE. [Concomitant]
     Active Substance: HYDROCORTISONE
     Indication: INFUSION SITE REACTION
     Dosage: 100 MG, STAT
     Route: 042
     Dates: start: 20190902, end: 20190902
  9. HYDROCORTISONE. [Concomitant]
     Active Substance: HYDROCORTISONE
     Dosage: 100 MG, STAT
     Route: 042
     Dates: start: 20191014, end: 20191014
  10. INSULIN GLARGINE [Concomitant]
     Active Substance: INSULIN GLARGINE
     Indication: TYPE 1 DIABETES MELLITUS
     Dosage: 30 IU, QD
     Route: 058
  11. REMSIMA [Suspect]
     Active Substance: INFLIXIMAB
     Dosage: 5 MG/KG (AFTER 6 WEEKS RECEIVED NEXT DOSE)
     Dates: start: 20191014
  12. SULFASALAZINE. [Concomitant]
     Active Substance: SULFASALAZINE
     Dosage: 1000 MG, QID
     Route: 048
     Dates: start: 20191015
  13. INSULIN ASPART [Concomitant]
     Active Substance: INSULIN ASPART
     Indication: TYPE 1 DIABETES MELLITUS
     Dosage: 10 IU, TID
     Route: 058
  14. REMSIMA [Suspect]
     Active Substance: INFLIXIMAB
     Dosage: UNK, RECEIVED THE NEXT DOSE AFTER 6 WEEKS
     Dates: start: 20190902
  15. AZATHIOPRINE. [Concomitant]
     Active Substance: AZATHIOPRINE
     Indication: COLITIS ULCERATIVE
     Dosage: 100 MG, QD
     Route: 048
  16. SULFASALAZINE. [Concomitant]
     Active Substance: SULFASALAZINE
     Indication: ARTHRITIS
     Dosage: 1000 MG, BID
     Route: 048
     Dates: start: 20190623, end: 20191014
  17. FOLIC ACID. [Concomitant]
     Active Substance: FOLIC ACID
     Indication: ARTHRITIS
     Dosage: 1 MG, QD
     Route: 048
     Dates: start: 20190623
  18. CALCIUM CARBONATE. [Concomitant]
     Active Substance: CALCIUM CARBONATE
     Indication: OSTEOPOROSIS
     Dosage: 600 MG, QD
     Route: 048
     Dates: start: 20190618

REACTIONS (2)
  - Bursitis [Not Recovered/Not Resolved]
  - Product use issue [Unknown]

NARRATIVE: CASE EVENT DATE: 20191014
